FAERS Safety Report 7392088-3 (Version None)
Quarter: 2011Q2

REPORT INFORMATION
  Report Type: 
  Country: None (occurrence: None)
  Receive Date: 20110404
  Receipt Date: 20110324
  Transmission Date: 20111010
  Serious: Yes (Hospitalization)
  Sender: FDA-Public Use
  Company Number: A0772863A

PATIENT
  Sex: Male
  Weight: 86.4 kg

DRUGS (11)
  1. PROSCAR [Concomitant]
  2. NEXIUM [Concomitant]
  3. DIOVAN [Concomitant]
  4. SYMBICORT [Concomitant]
  5. AVANDAMET [Suspect]
     Indication: DIABETES MELLITUS
     Route: 048
  6. VERAPAMIL [Concomitant]
  7. SPIRIVA [Concomitant]
  8. AVANDIA [Suspect]
     Indication: DIABETES MELLITUS
     Route: 048
  9. COUMADIN [Concomitant]
  10. FOLIC ACID [Concomitant]
  11. ALLOPURINOL [Concomitant]

REACTIONS (3)
  - MYOCARDIAL INFARCTION [None]
  - ANGINA PECTORIS [None]
  - CARDIAC FAILURE CONGESTIVE [None]
